FAERS Safety Report 4303845-1 (Version None)
Quarter: 2004Q1

REPORT INFORMATION
  Report Type: 
  Country: None (occurrence: None)
  Receive Date: 20040224
  Receipt Date: 20040224
  Transmission Date: 20041129
  Serious: Yes (Life-Threatening)
  Sender: FDA-Public Use
  Company Number: None

PATIENT
  Age: 12 Year
  Sex: Female
  Weight: 68.7 kg

DRUGS (7)
  1. CYTARABINE [Suspect]
     Indication: ACUTE MYELOID LEUKAEMIA
     Dosage: 5250 MG X 3 HRS Q 12 HRS X 6 IV
     Route: 042
     Dates: start: 20040206, end: 20040209
  2. MITOXANTRONE [Suspect]
     Indication: ACUTE MYELOID LEUKAEMIA
     Dosage: 17.5MG X 30 MIN X 2 IV
     Route: 042
     Dates: start: 20040208, end: 20040209
  3. METHOTREXATE [Concomitant]
  4. HYDRO [Concomitant]
  5. CYTARABINE [Concomitant]
  6. VORICONAZOLE [Concomitant]
  7. BACTRIM [Concomitant]

REACTIONS (17)
  - BACTERIAL INFECTION [None]
  - BLOOD CULTURE POSITIVE [None]
  - CENTRAL LINE INFECTION [None]
  - HAEMOGLOBIN DECREASED [None]
  - HYPOTENSION [None]
  - METABOLIC ACIDOSIS [None]
  - NEUTROPENIA [None]
  - OXYGEN SATURATION DECREASED [None]
  - PALLOR [None]
  - PLATELET COUNT DECREASED [None]
  - PNEUMONIA [None]
  - PYREXIA [None]
  - RESPIRATORY RATE INCREASED [None]
  - STREPTOCOCCAL INFECTION [None]
  - TACHYCARDIA [None]
  - TACHYPNOEA [None]
  - WHITE BLOOD CELL COUNT DECREASED [None]
